FAERS Safety Report 7163657-0 (Version None)
Quarter: 2010Q4

REPORT INFORMATION
  Report Type: 
  Country: None (occurrence: None)
  Receive Date: 20101215
  Receipt Date: 20100525
  Transmission Date: 20110411
  Serious: Yes (Other)
  Sender: FDA-Public Use
  Company Number: BR-PFIZER INC-2010061605

PATIENT
  Age: 44 Year
  Sex: Female

DRUGS (5)
  1. LYRICA [Suspect]
     Indication: NEURALGIA
     Dosage: 75 MG, 2X/DAY (EVERY 12 HOURS)
     Route: 048
  2. LYRICA [Suspect]
     Indication: FIBROMYALGIA
     Dosage: 150 MG, UNK
     Route: 048
     Dates: end: 20100515
  3. ALPRAZOLAM [Concomitant]
     Indication: DEPRESSION
     Dosage: UNK
  4. FLUOXETINE [Concomitant]
     Indication: DEPRESSION
     Dosage: UNK
  5. CLONAZEPAM [Concomitant]
     Indication: DEPRESSION
     Dosage: UNK

REACTIONS (9)
  - COMMUNICATION DISORDER [None]
  - CRYING [None]
  - DEPRESSION [None]
  - EYE DISORDER [None]
  - EYE SWELLING [None]
  - FEELING HOT [None]
  - LISTLESS [None]
  - PAIN [None]
  - SWELLING FACE [None]
